FAERS Safety Report 7131109-X (Version None)
Quarter: 2010Q4

REPORT INFORMATION
  Report Type: 
  Country: None (occurrence: None)
  Receive Date: 20101201
  Receipt Date: 20101118
  Transmission Date: 20110411
  Serious: Yes (Other)
  Sender: FDA-Public Use
  Company Number: US-ELI_LILLY_AND_COMPANY-US201011005700

PATIENT
  Sex: Female

DRUGS (7)
  1. FORTEO [Suspect]
     Indication: OSTEOPOROSIS
     Dosage: 20 UG, DAILY (1/D)
  2. ATENOLOL [Concomitant]
  3. ZANTAC [Concomitant]
  4. SYNTHROID [Concomitant]
  5. CLONAZEPAM [Concomitant]
     Indication: TREMOR
  6. PRILOSEC [Concomitant]
  7. ASPIRIN LOW [Concomitant]
     Dosage: 1 D/F, DAILY (1/D)

REACTIONS (5)
  - BREAST CANCER [None]
  - DECREASED APPETITE [None]
  - FEAR [None]
  - STRESS [None]
  - WEIGHT DECREASED [None]
